FAERS Safety Report 5896894-3 (Version None)
Quarter: 2008Q3

REPORT INFORMATION
  Report Type: 
  Country: None (occurrence: None)
  Receive Date: 20080924
  Receipt Date: 20071109
  Transmission Date: 20090109
  Serious: No
  Sender: FDA-Public Use
  Company Number: US-BAYER-200714494BWH

PATIENT
  Age: 27 Year
  Sex: Female
  Weight: 67 kg

DRUGS (2)
  1. AVELOX [Suspect]
     Indication: SINUSITIS
     Route: 048
     Dates: start: 20071106, end: 20071106
  2. AVELOX [Suspect]
     Route: 048
     Dates: start: 20070820, end: 20070902

REACTIONS (5)
  - ANXIETY [None]
  - DIZZINESS [None]
  - NERVOUSNESS [None]
  - PANIC REACTION [None]
  - VERTIGO [None]
